FAERS Safety Report 23121903 (Version 1)
Quarter: 2023Q4

REPORT INFORMATION
  Report Type: Spontaneous
  Country: AU (occurrence: AU)
  Receive Date: 20231030
  Receipt Date: 20231030
  Transmission Date: 20240110
  Serious: Yes (Other)
  Sender: FDA-Public Use
  Company Number: AU-JNJFOC-20231050164

PATIENT

DRUGS (1)
  1. TECVAYLI [Suspect]
     Active Substance: TECLISTAMAB-CQYV
     Indication: Plasma cell myeloma refractory
     Route: 065

REACTIONS (11)
  - Gastrointestinal infection [Unknown]
  - Genitourinary tract infection [Unknown]
  - Skin infection [Unknown]
  - Soft tissue infection [Unknown]
  - Viraemia [Unknown]
  - Cytokine release syndrome [Unknown]
  - Neurotoxicity [Unknown]
  - Pneumonia [Unknown]
  - Bacteraemia [Unknown]
  - COVID-19 [Unknown]
  - Upper respiratory tract infection [Unknown]
